FAERS Safety Report 8291456-5 (Version None)
Quarter: 2012Q2

REPORT INFORMATION
  Report Type: 
  Country: None (occurrence: None)
  Receive Date: 20120417
  Receipt Date: 20120416
  Transmission Date: 20120825
  Serious: Yes (Other)
  Sender: FDA-Public Use
  Company Number: US-PFIZER INC-2012094154

PATIENT
  Sex: Female
  Weight: 74.83 kg

DRUGS (4)
  1. SYNTHROID [Concomitant]
     Dosage: UNK
  2. DEPAKOTE [Concomitant]
     Dosage: UNK
  3. EFFEXOR [Suspect]
     Indication: BIPOLAR DISORDER
     Dosage: 75 MG, 3X/DAY
     Route: 048
  4. XANAX [Suspect]
     Indication: ANXIETY
     Dosage: 3 MG, 1X/DAY
     Route: 048

REACTIONS (3)
  - DRUG EFFECT DECREASED [None]
  - CONFUSIONAL STATE [None]
  - PEPTIC ULCER [None]
